FAERS Safety Report 13144283 (Version 1)
Quarter: 2017Q1

REPORT INFORMATION
  Report Type: Spontaneous
  Country: BR (occurrence: BR)
  Receive Date: 20170124
  Receipt Date: 20170124
  Transmission Date: 20170428
  Serious: Yes (Other)
  Sender: FDA-Public Use
  Company Number: BR-DSJP-DSU-2017-102237

PATIENT

DRUGS (1)
  1. OLMETEC ANLO 20/5 [Suspect]
     Active Substance: AMLODIPINE BESYLATE\OLMESARTAN MEDOXOMIL
     Indication: PRODUCT USED FOR UNKNOWN INDICATION
     Dosage: 20/5 MG, UNK
     Route: 048

REACTIONS (4)
  - Feeling abnormal [Unknown]
  - Cerebrovascular accident [Unknown]
  - Ischaemia [Unknown]
  - Disorganised speech [Unknown]

NARRATIVE: CASE EVENT DATE: 20170109
